FAERS Safety Report 8048992-6 (Version None)
Quarter: 2011Q4

REPORT INFORMATION
  Report Type: 
  Country: None (occurrence: None)
  Receive Date: 20111209
  Receipt Date: 20110829
  Transmission Date: 20120403
  Serious: No
  Sender: FDA-Public Use
  Company Number: 2011SP040894

PATIENT
  Age: 54 Year
  Sex: Female

DRUGS (5)
  1. MULTI-VITAMINS [Concomitant]
  2. VICTRELIS [Suspect]
     Indication: HEPATITIS C
     Dosage: PO; 800 MG;TID; PO
     Route: 048
     Dates: start: 20110916, end: 20111010
  3. VICTRELIS [Suspect]
     Indication: HEPATITIS C
     Dosage: PO; 800 MG;TID; PO
     Route: 048
     Dates: start: 20110827
  4. ASCORBIC ACID [Concomitant]
  5. CALCIUM [Concomitant]

REACTIONS (4)
  - DYSGEUSIA [None]
  - NAUSEA [None]
  - FATIGUE [None]
  - RASH [None]
